FAERS Safety Report 6007969-2 (Version None)
Quarter: 2008Q4

REPORT INFORMATION
  Report Type: 
  Country: None (occurrence: None)
  Receive Date: 20081217
  Receipt Date: 20080620
  Transmission Date: 20090506
  Serious: No
  Sender: FDA-Public Use
  Company Number: US-ASTRAZENECA-2008UW12444

PATIENT
  Age: 75 Year
  Sex: Female
  Weight: 81.6 kg

DRUGS (4)
  1. CRESTOR [Suspect]
     Indication: BLOOD CHOLESTEROL INCREASED
     Dosage: HAS TAKEN 2 DOSES
     Route: 048
  2. DIOVAN [Concomitant]
  3. LEVOXYL [Concomitant]
  4. JANUMET [Concomitant]

REACTIONS (3)
  - DIARRHOEA [None]
  - NEUROPATHY PERIPHERAL [None]
  - PAIN IN EXTREMITY [None]
